FAERS Safety Report 18445072 (Version 2)
Quarter: 2025Q2

REPORT INFORMATION
  Report Type: Spontaneous
  Country: US (occurrence: US)
  Receive Date: 20201030
  Receipt Date: 20250528
  Transmission Date: 20250717
  Serious: No
  Sender: CIPLA
  Company Number: US-CIPLA LTD.-2020US06294

PATIENT

DRUGS (6)
  1. ALBUTEROL [Suspect]
     Active Substance: ALBUTEROL
     Indication: Asthma
  2. ALBUTEROL [Suspect]
     Active Substance: ALBUTEROL
     Dates: start: 20200827, end: 2020
  3. LAMICTAL [Concomitant]
     Active Substance: LAMOTRIGINE
     Indication: Depression
     Dosage: 200 MILLIGRAM, QD (ACCORD HEALTHIER)
     Route: 065
     Dates: start: 2018
  4. ARIPIPRAZOLE [Concomitant]
     Active Substance: ARIPIPRAZOLE
     Indication: Depression
     Dosage: 15 MILLIGRAM, QD
     Route: 048
     Dates: start: 2018
  5. ALBUTEROL SULFATE\IPRATROPIUM BROMIDE [Concomitant]
     Active Substance: ALBUTEROL SULFATE\IPRATROPIUM BROMIDE
     Indication: Asthma
     Dosage: UNK, QID (ONE SOLUTION EVERY SIX HOURS), MYLAN PHARMACEUTICALS
     Route: 065
     Dates: start: 2018
  6. TRAZODONE [Concomitant]
     Active Substance: TRAZODONE HYDROCHLORIDE
     Indication: Insomnia
     Dosage: 200 MILLIGRAM, QD (AT BEDTIME) (TORRENT PHARMACY)
     Route: 065
     Dates: start: 2018

REACTIONS (8)
  - Expired product administered [Not Recovered/Not Resolved]
  - Inappropriate schedule of product administration [Unknown]
  - Product dispensing error [Unknown]
  - Device difficult to use [Unknown]
  - Device malfunction [Unknown]
  - Device use confusion [Unknown]
  - Nausea [Recovered/Resolved]
  - Dizziness [Recovered/Resolved]

NARRATIVE: CASE EVENT DATE: 20200801
